FAERS Safety Report 7967436-3 (Version None)
Quarter: 2011Q4

REPORT INFORMATION
  Report Type: 
  Country: None (occurrence: None)
  Receive Date: 20111209
  Receipt Date: 20111124
  Transmission Date: 20120403
  Serious: Yes (Hospitalization)
  Sender: FDA-Public Use
  Company Number: FR-CELGENEUS-056-20785-11120303

PATIENT
  Sex: Male

DRUGS (2)
  1. THALIDOMIDE [Suspect]
     Indication: MYELOFIBROSIS
     Dosage: 1 DOSAGE FORMS
     Route: 048
     Dates: start: 20101209, end: 20101227
  2. EXJADE [Concomitant]
     Route: 065

REACTIONS (5)
  - CHEST PAIN [None]
  - PENILE OEDEMA [None]
  - RASH ERYTHEMATOUS [None]
  - DYSPNOEA [None]
  - PYREXIA [None]
